FAERS Safety Report 5646951-1 (Version None)
Quarter: 2008Q1

REPORT INFORMATION
  Report Type: 
  Country: None (occurrence: None)
  Receive Date: 20080228
  Receipt Date: 20080228
  Transmission Date: 20080703
  Serious: Yes (Other)
  Sender: FDA-Public Use
  Company Number: None

PATIENT
  Sex: Female
  Weight: 112.0385 kg

DRUGS (9)
  1. LEUKINE [Suspect]
     Indication: MALIGNANT MELANOMA
     Dosage: 250 MG QD SQ
     Route: 058
  2. METOPROLOL TARTRATE [Concomitant]
  3. FUROSEMIDE [Concomitant]
  4. GLYBURIDE [Concomitant]
  5. TRICOR [Concomitant]
  6. COZAAR [Concomitant]
  7. SIMVASTATIN [Concomitant]
  8. CALCIUM WITH VITAMIN D [Concomitant]
  9. MAGNESIUM OXIDE [Concomitant]

REACTIONS (7)
  - BURNING SENSATION [None]
  - DISCOMFORT [None]
  - NO THERAPEUTIC RESPONSE [None]
  - PAIN [None]
  - RASH ERYTHEMATOUS [None]
  - RASH PRURITIC [None]
  - SKIN LESION [None]
